FAERS Safety Report 24959409 (Version 1)
Quarter: 2025Q1

REPORT INFORMATION
  Report Type: Spontaneous
  Country: US (occurrence: None)
  Receive Date: 20250211
  Receipt Date: 20250211
  Transmission Date: 20250409
  Serious: Yes (Disabling, Other)
  Sender: FDA-CTU
  Company Number: None

PATIENT
  Age: 84 Year
  Sex: Female
  Weight: 43.09 kg

DRUGS (8)
  1. ALENDRONATE [Suspect]
     Active Substance: ALENDRONATE SODIUM
     Indication: Osteoporosis
     Dosage: FREQUENCY : WEEKLY;?
     Route: 048
  2. OLMESARTAN [Concomitant]
     Active Substance: OLMESARTAN
  3. Hydro Chlorothiaz [Concomitant]
  4. ATORVASTATIN [Concomitant]
     Active Substance: ATORVASTATIN
  5. Preser vision [Concomitant]
  6. VITAMINS [Concomitant]
     Active Substance: VITAMINS
  7. calcium with omega [Concomitant]
  8. FISH OIL [Concomitant]
     Active Substance: FISH OIL

REACTIONS (15)
  - Musculoskeletal stiffness [None]
  - Arthralgia [None]
  - Joint swelling [None]
  - Feeling abnormal [None]
  - Dysstasia [None]
  - Pain in extremity [None]
  - Bone pain [None]
  - Arthralgia [None]
  - Myalgia [None]
  - Swelling face [None]
  - Muscle spasms [None]
  - Gastrointestinal disorder [None]
  - Fall [None]
  - Visual impairment [None]
  - Hypoacusis [None]

NARRATIVE: CASE EVENT DATE: 20230101
